FAERS Safety Report 10346495 (Version 3)
Quarter: 2014Q3

REPORT INFORMATION
  Report Type: Report from Study
  Country: JP (occurrence: JP)
  Receive Date: 20140729
  Receipt Date: 20140818
  Transmission Date: 20150326
  Serious: Yes (Death, Hospitalization)
  Sender: FDA-Public Use
  Company Number: JP-ROCHE-1397920

PATIENT
  Age: 67 Year
  Sex: Male
  Weight: 53 kg

DRUGS (25)
  1. CALTAN [Concomitant]
     Active Substance: CALCIUM CARBONATE
     Route: 048
  2. BAYASPIRIN [Concomitant]
     Active Substance: ASPIRIN
     Route: 048
  3. MYSLEE [Concomitant]
     Active Substance: ZOLPIDEM TARTRATE
     Route: 048
  4. ARTIST [Concomitant]
     Active Substance: CARVEDILOL
     Route: 048
  5. NEXIUM [Concomitant]
     Active Substance: ESOMEPRAZOLE MAGNESIUM
     Route: 048
  6. GLUCOBAY [Concomitant]
     Active Substance: ACARBOSE
     Route: 048
  7. VICTOZA [Concomitant]
     Active Substance: LIRAGLUTIDE
     Route: 065
  8. METHOXY POLYETHYLENE GLYCOL-EPOETIN BETA [Suspect]
     Active Substance: PEGZEREPOETIN ALFA
     Indication: NEPHROGENIC ANAEMIA
     Route: 042
     Dates: start: 20140203, end: 20140622
  9. LENDORMIN [Concomitant]
     Active Substance: BROTIZOLAM
     Route: 048
  10. GASMOTIN [Concomitant]
     Active Substance: MOSAPRIDE CITRATE
     Route: 048
  11. RISUMIC [Concomitant]
     Active Substance: AMEZINIUM METILSULFATE
     Route: 048
  12. RISUMIC [Concomitant]
     Active Substance: AMEZINIUM METILSULFATE
     Dosage: AT HD
     Route: 048
  13. DOPS [Concomitant]
     Active Substance: DROXIDOPA
     Dosage: BEFORE DIALYSIS 2HR
     Route: 048
  14. KINEDAK [Concomitant]
     Active Substance: EPALRESTAT
     Route: 048
  15. ONGLYZA [Concomitant]
     Active Substance: SAXAGLIPTIN HYDROCHLORIDE
     Route: 048
  16. LASIX [Concomitant]
     Active Substance: FUROSEMIDE
     Route: 048
  17. PARIET [Concomitant]
     Active Substance: RABEPRAZOLE SODIUM
     Route: 048
  18. NAIXAN [Concomitant]
     Active Substance: NAPROXEN SODIUM
     Route: 048
  19. MEDICON (DEXTROMETHORPHAN HYDROBROMIDE) [Concomitant]
     Active Substance: DEXTROMETHORPHAN HYDROBROMIDE
     Route: 048
  20. METHOXY POLYETHYLENE GLYCOL-EPOETIN BETA [Suspect]
     Active Substance: PEGZEREPOETIN ALFA
     Indication: NEPHROGENIC ANAEMIA
     Route: 042
     Dates: start: 20140623, end: 2014
  21. ALOSITOL [Concomitant]
     Active Substance: ALLOPURINOL
     Route: 048
  22. NU-LOTAN [Concomitant]
     Active Substance: LOSARTAN POTASSIUM
     Route: 048
  23. SENNA [Concomitant]
     Active Substance: SENNA LEAF\SENNOSIDES\SENNOSIDES A AND B
     Route: 048
  24. LYRICA [Concomitant]
     Active Substance: PREGABALIN
     Route: 048
  25. AMLODIPINE [Concomitant]
     Active Substance: AMLODIPINE BESYLATE
     Dosage: DRUG REPORTED AS AMLODIPINE OD
     Route: 048

REACTIONS (4)
  - Cardiac failure [Recovering/Resolving]
  - Haemobilia [Recovered/Resolved]
  - Pyrexia [Unknown]
  - General physical health deterioration [Fatal]

NARRATIVE: CASE EVENT DATE: 20140323
